FAERS Safety Report 4760408-1 (Version None)
Quarter: 2005Q3

REPORT INFORMATION
  Report Type: 
  Country: None (occurrence: None)
  Receive Date: 20050826
  Receipt Date: 20050208
  Transmission Date: 20060218
  Serious: Yes (Other)
  Sender: FDA-Public Use
  Company Number: USA-2005-0018772

PATIENT
  Age: 26 Year
  Sex: Male
  Weight: 85.3 kg

DRUGS (11)
  1. OXYCONTIN [Suspect]
     Indication: PAIN
  2. ALPRAZOLAM [Suspect]
  3. DIAZEPAM [Suspect]
  4. FENTANYL [Suspect]
  5. CANNABINOIDS [Suspect]
  6. CHLORPHENIRAMINE TAB [Suspect]
  7. OXAZEPAM [Suspect]
  8. TEMAZEPAM [Suspect]
  9. NAPROXEN [Suspect]
  10. CAFFEINE (CAFFEINE) [Suspect]
  11. VALIUM [Concomitant]

REACTIONS (1)
  - DRUG DEPENDENCE [None]
